FAERS Safety Report 5643309-6 (Version None)
Quarter: 2008Q1

REPORT INFORMATION
  Report Type: 
  Country: None (occurrence: None)
  Receive Date: 20080226
  Receipt Date: 20071207
  Transmission Date: 20080703
  Serious: Yes (Hospitalization)
  Sender: FDA-Public Use
  Company Number: 023#3#2007-00002

PATIENT
  Age: 75 Year
  Sex: Female

DRUGS (7)
  1. MONOKET [Suspect]
     Indication: ANGINA PECTORIS
     Dosage: 50 MG ORAL
     Route: 048
  2. ACETYLSALICYLIC ACID SRT [Concomitant]
  3. XALATAN [Concomitant]
  4. COSOPT [Concomitant]
  5. RANITIDINE [Concomitant]
  6. CARDIZEM [Concomitant]
  7. SIMVASTATIN [Concomitant]

REACTIONS (1)
  - RHABDOMYOLYSIS [None]
